FAERS Safety Report 7091933-9 (Version None)
Quarter: 2010Q4

REPORT INFORMATION
  Report Type: 
  Country: None (occurrence: None)
  Receive Date: 20101101
  Receipt Date: 20101014
  Transmission Date: 20110411
  Serious: Yes (Disabling, Other)
  Sender: FDA-Public Use
  Company Number: ACO_02030_2010

PATIENT
  Sex: Female
  Weight: 52.1637 kg

DRUGS (3)
  1. AMPYRA [Suspect]
     Indication: GAIT DISTURBANCE
     Dosage: (1 DF, 10 MG BID)
     Dates: start: 20100601, end: 20100601
  2. AMPYRA [Suspect]
     Indication: MUSCULAR WEAKNESS
     Dosage: (1 DF, 10 MG BID)
     Dates: start: 20100601, end: 20100601
  3. TYSABRI [Concomitant]

REACTIONS (1)
  - IMMOBILE [None]
